FAERS Safety Report 24315741 (Version 3)
Quarter: 2024Q4

REPORT INFORMATION
  Report Type: Spontaneous
  Country: US (occurrence: US)
  Receive Date: 20240913
  Receipt Date: 20241003
  Transmission Date: 20250115
  Serious: No
  Sender: BRISTOL MYERS SQUIBB
  Company Number: US-BRISTOL-MYERS SQUIBB COMPANY-2024-144663

PATIENT
  Age: 87 Year
  Sex: Male
  Weight: 80.29 kg

DRUGS (2)
  1. REVLIMID [Suspect]
     Active Substance: LENALIDOMIDE
     Indication: Plasma cell myeloma
     Route: 048
     Dates: start: 202402
  2. REVLIMID [Suspect]
     Active Substance: LENALIDOMIDE
     Dosage: FREQ: 1 CAPSULE EVERY DAY AT 9PM FOR 21 DAYS; OFF FOR 7?DAYS.
     Route: 048
     Dates: start: 202408

REACTIONS (3)
  - Platelet count decreased [Recovering/Resolving]
  - Contusion [Not Recovered/Not Resolved]
  - Back pain [Unknown]

NARRATIVE: CASE EVENT DATE: 20240801
